FAERS Safety Report 9735198 (Version 1)
Quarter: 2013Q4

REPORT INFORMATION
  Report Type: Spontaneous
  Country: US (occurrence: US)
  Receive Date: 20131206
  Receipt Date: 20131206
  Transmission Date: 20140711
  Serious: No
  Sender: FDA-Public Use
  Company Number: US-PFIZER INC-2013346570

PATIENT
  Age: 47 Year
  Sex: Female
  Weight: 55.78 kg

DRUGS (1)
  1. XELJANZ [Suspect]
     Indication: PSORIATIC ARTHROPATHY
     Dosage: 5 MG, 2X/DAY
     Route: 048
     Dates: start: 20131023

REACTIONS (3)
  - Cough [Unknown]
  - Headache [Unknown]
  - Eye disorder [Unknown]
